FAERS Safety Report 14137869 (Version 1)
Quarter: 2017Q4

REPORT INFORMATION
  Report Type: Spontaneous
  Country: US (occurrence: US)
  Receive Date: 20171027
  Receipt Date: 20171027
  Transmission Date: 20180321
  Serious: No
  Sender: FDA-Public Use
  Company Number: US-BAYER-2017-189782

PATIENT
  Age: 24 Year
  Sex: Female
  Weight: 75 kg

DRUGS (1)
  1. MIDOL LONG LASTING RELIEF [Suspect]
     Active Substance: ACETAMINOPHEN
     Indication: PAIN
     Dosage: 2 DF, Q8HR
     Route: 048
     Dates: start: 201707, end: 201709

REACTIONS (2)
  - Incorrect drug administration duration [None]
  - Drug ineffective [Unknown]

NARRATIVE: CASE EVENT DATE: 2017
